FAERS Safety Report 5584289-1 (Version None)
Quarter: 2008Q1

REPORT INFORMATION
  Report Type: 
  Country: None (occurrence: None)
  Receive Date: 20080108
  Receipt Date: 20071231
  Transmission Date: 20080703
  Serious: Yes (Hospitalization)
  Sender: FDA-Public Use
  Company Number: B0501652A

PATIENT
  Age: 40 Year
  Sex: Male
  Weight: 110 kg

DRUGS (6)
  1. FORTUM [Suspect]
     Indication: INFECTION
     Route: 042
     Dates: start: 20070817
  2. VANCOMYCIN [Suspect]
     Indication: INFECTION
     Dosage: 4G PER DAY
     Route: 042
     Dates: start: 20070823, end: 20070828
  3. CANCIDAS [Concomitant]
     Indication: CANDIDIASIS
     Route: 042
  4. INSULIN [Concomitant]
     Route: 042
  5. TERCIAN [Concomitant]
     Indication: DRUG USE FOR UNKNOWN INDICATION
     Route: 042
  6. HEPARIN [Concomitant]
     Indication: DRUG USE FOR UNKNOWN INDICATION
     Route: 065
     Dates: start: 20070823

REACTIONS (6)
  - CELLULITIS [None]
  - INFLAMMATION [None]
  - PULMONARY EMBOLISM [None]
  - PYREXIA [None]
  - THROMBOPHLEBITIS SEPTIC [None]
  - THROMBOSIS [None]
